FAERS Safety Report 9286303 (Version 2)
Quarter: 2013Q2

REPORT INFORMATION
  Report Type: Spontaneous
  Country: CZ (occurrence: CZ)
  Receive Date: 20130513
  Receipt Date: 20130603
  Transmission Date: 20140414
  Serious: Yes (Hospitalization)
  Sender: FDA-Public Use
  Company Number: CZ-PFIZER INC-2013144690

PATIENT
  Age: 45 Year
  Sex: Female

DRUGS (2)
  1. DALACIN [Suspect]
     Indication: ANTIBIOTIC PROPHYLAXIS
     Dosage: 300 MG, 4X/DAY
     Route: 048
     Dates: start: 20130423, end: 20130428
  2. DALACIN [Suspect]
     Dates: start: 20130423, end: 20130428

REACTIONS (2)
  - Swelling [Unknown]
  - Drug eruption [Unknown]
